FAERS Safety Report 13891755 (Version 1)
Quarter: 2017Q3

REPORT INFORMATION
  Report Type: Report from Study
  Country: PH (occurrence: PH)
  Receive Date: 20170822
  Receipt Date: 20170822
  Transmission Date: 20171127
  Serious: Yes (Other)
  Sender: FDA-Public Use
  Company Number: PHHY2017PH122121

PATIENT
  Age: 42 Year
  Sex: Female

DRUGS (1)
  1. TASIGNA [Suspect]
     Active Substance: NILOTINIB
     Indication: PRODUCT USED FOR UNKNOWN INDICATION
     Dosage: 800 MG, UNK
     Route: 048
     Dates: start: 20130401

REACTIONS (3)
  - Cytogenetic analysis abnormal [Unknown]
  - Chronic myeloid leukaemia [Unknown]
  - Drug resistance [Unknown]

NARRATIVE: CASE EVENT DATE: 20170517
